FAERS Safety Report 9384114 (Version 2)
Quarter: 2014Q3

REPORT INFORMATION
  Report Type: Spontaneous
  Country: US (occurrence: US)
  Receive Date: 20130705
  Receipt Date: 20140702
  Transmission Date: 20150326
  Serious: No
  Sender: FDA-Public Use
  Company Number: US-B.I. PHARMACEUTICALS,INC./RIDGEFIELD-2013-BI-18961BP

PATIENT
  Age: 60 Year
  Sex: Female

DRUGS (5)
  1. COMBIVENT [Suspect]
     Active Substance: ALBUTEROL SULFATE\IPRATROPIUM BROMIDE
     Indication: CHRONIC OBSTRUCTIVE PULMONARY DISEASE
     Dosage: STRENGTH: 20 MCG / 100 MCG; DAILY DOSE: 80 MCG / 400 MCG
     Route: 055
     Dates: start: 20130623
  2. ALBUTEROL HFA [Concomitant]
     Active Substance: ALBUTEROL SULFATE
     Route: 055
  3. DUONEB [Concomitant]
     Active Substance: ALBUTEROL SULFATE\IPRATROPIUM BROMIDE
     Route: 055
  4. ADVAIR HFA [Concomitant]
     Active Substance: FLUTICASONE PROPIONATE\SALMETEROL XINAFOATE
     Dosage: STRENGTH: 500 MCG/50MCG; DAILY DOSE: 1000MCG/100MCG
     Route: 055
  5. SPIRIVA [Suspect]
     Active Substance: TIOTROPIUM BROMIDE MONOHYDRATE
     Indication: CHRONIC OBSTRUCTIVE PULMONARY DISEASE
     Route: 055

REACTIONS (5)
  - Dysphonia [Not Recovered/Not Resolved]
  - Drug ineffective [Not Recovered/Not Resolved]
  - Dysuria [Recovered/Resolved]
  - Chest discomfort [Not Recovered/Not Resolved]
  - Product quality issue [Recovered/Resolved]

NARRATIVE: CASE EVENT DATE: 20130623
